FAERS Safety Report 24025917 (Version 1)
Quarter: 2024Q2

REPORT INFORMATION
  Report Type: Spontaneous
  Country: US (occurrence: US)
  Receive Date: 20240628
  Receipt Date: 20240628
  Transmission Date: 20240716
  Serious: No
  Sender: FDA-Public Use
  Company Number: US-AUROBINDO-AUR-APL-2023-078740

PATIENT
  Age: 12 Year
  Sex: Male
  Weight: 49.895 kg

DRUGS (1)
  1. AZELASTINE HYDROCHLORIDE [Suspect]
     Active Substance: AZELASTINE HYDROCHLORIDE
     Indication: Hypersensitivity
     Dosage: UNK, TWO TIMES A DAY (AS NEEDED)
     Route: 065

REACTIONS (4)
  - Product dose omission issue [Unknown]
  - Product leakage [Unknown]
  - Device issue [Unknown]
  - Product packaging quantity issue [Unknown]
